FAERS Safety Report 20507292 (Version 1)
Quarter: 2022Q1

REPORT INFORMATION
  Report Type: Spontaneous
  Country: US (occurrence: None)
  Receive Date: 20220222
  Receipt Date: 20220222
  Transmission Date: 20220423
  Serious: Yes (Life-Threatening, Other)
  Sender: FDA-Public Use
  Company Number: None

PATIENT
  Age: 53 Year
  Sex: Female

DRUGS (1)
  1. ALEVE [Suspect]
     Active Substance: NAPROXEN SODIUM
     Indication: Arthritis

REACTIONS (6)
  - Hyperhidrosis [None]
  - Dyspnoea [None]
  - Oropharyngeal pain [None]
  - Dysuria [None]
  - Chest pain [None]
  - Fluid retention [None]

NARRATIVE: CASE EVENT DATE: 20220218
